FAERS Safety Report 8607748-3 (Version None)
Quarter: 2012Q3

REPORT INFORMATION
  Report Type: 
  Country: None (occurrence: None)
  Receive Date: 20120821
  Receipt Date: 20120814
  Transmission Date: 20120928
  Serious: Yes (Other)
  Sender: FDA-Public Use
  Company Number: PHHY2012MX071511

PATIENT
  Sex: Female

DRUGS (2)
  1. STALEVO 100 [Suspect]
     Indication: PARKINSON'S DISEASE
     Dosage: 3 DF OF 50/12.5/200MG TABLETS, DAILY
     Dates: start: 20120501
  2. STALEVO 100 [Suspect]
     Dosage: 2 DF OF 50/12.5/200MG TABLETS, DAILY
     Dates: start: 20120701

REACTIONS (1)
  - ORGAN FAILURE [None]
